FAERS Safety Report 17863862 (Version 1)
Quarter: 2020Q2

REPORT INFORMATION
  Report Type: Spontaneous
  Country: JP (occurrence: JP)
  Receive Date: 20200605
  Receipt Date: 20200605
  Transmission Date: 20200714
  Serious: Yes (Hospitalization, Other)
  Sender: FDA-Public Use
  Company Number: JP-SA-2020SA141016

PATIENT

DRUGS (1)
  1. PLAVIX [Suspect]
     Active Substance: CLOPIDOGREL BISULFATE
     Indication: CEREBRAL INFARCTION
     Dosage: UNK, BI3D
     Route: 048

REACTIONS (3)
  - Cerebral infarction [Unknown]
  - Aortic dissection [Unknown]
  - Aortic dissection [Recovering/Resolving]

NARRATIVE: CASE EVENT DATE: 2020
